FAERS Safety Report 20200247 (Version 3)
Quarter: 2022Q4

REPORT INFORMATION
  Report Type: Spontaneous
  Country: US (occurrence: US)
  Receive Date: 20211217
  Receipt Date: 20221115
  Transmission Date: 20230112
  Serious: No
  Sender: FDA-Public Use
  Company Number: US-PFIZER INC-202101630553

PATIENT
  Age: 77 Year
  Sex: Female

DRUGS (1)
  1. PREMPRO [Suspect]
     Active Substance: ESTROGENS, CONJUGATED\MEDROXYPROGESTERONE ACETATE
     Dosage: UNK

REACTIONS (5)
  - Product dispensing issue [Unknown]
  - Product prescribing error [Unknown]
  - Back pain [Unknown]
  - Stress [Unknown]
  - Hypertension [Unknown]

NARRATIVE: CASE EVENT DATE: 20221114
